FAERS Safety Report 9278630 (Version 3)
Quarter: 2013Q3

REPORT INFORMATION
  Report Type: Spontaneous
  Country: US (occurrence: US)
  Receive Date: 20130508
  Receipt Date: 20130911
  Transmission Date: 20140515
  Serious: No
  Sender: FDA-Public Use
  Company Number: US-PFIZER INC-2013141928

PATIENT
  Age: 63 Year
  Sex: Male
  Weight: 72.56 kg

DRUGS (16)
  1. XELJANZ [Suspect]
     Indication: CROHN^S DISEASE
     Dosage: 5 MG, 2X/DAY
     Route: 048
     Dates: start: 201305
  2. CYMBALTA [Concomitant]
     Indication: DEPRESSION
     Dosage: UNK
  3. HYDROCODONE [Concomitant]
     Indication: PAIN
     Dosage: UNK
  4. MORPHINE [Concomitant]
     Indication: PAIN
     Dosage: 1 ML, 1X/DAY
  5. GABAPENTIN [Concomitant]
     Dosage: 100 MG, 2X/DAY
  6. CENTRUM SILVER [Concomitant]
     Dosage: UNK
  7. VITAMIN D [Concomitant]
     Dosage: UNK
  8. VITAMIN E [Concomitant]
     Dosage: UNK
  9. PREDNISONE [Concomitant]
     Indication: INFLAMMATION
     Dosage: 10MG DAILY
  10. PREDNISONE [Concomitant]
     Dosage: 10 MG, 1X/DAY
  11. XANAX [Concomitant]
     Indication: SLEEP DISORDER
     Dosage: 1 MG, 1X/DAY
  12. VITAMIN C [Concomitant]
     Dosage: UNK
  13. HYDROCODONE W/ACETAMINOPHEN [Concomitant]
     Dosage: 10/325 MG, UNK
  14. BABY ASPIRIN [Concomitant]
     Dosage: 1X/DAY
  15. TRAZODONE [Concomitant]
     Indication: SLEEP DISORDER
     Dosage: 50 MG, MONTHLY
  16. BENAZEPRIL HYDROCHLORIDE/HYDROCHLOROTHIAZIDE [Concomitant]
     Indication: HYPERTENSION
     Dosage: 20/25 MG, UNK

REACTIONS (6)
  - Off label use [Unknown]
  - Fatigue [Unknown]
  - Glossodynia [Unknown]
  - Paraesthesia oral [Unknown]
  - Oral pain [Unknown]
  - Drug ineffective for unapproved indication [Unknown]
